FAERS Safety Report 6445738-X (Version None)
Quarter: 2009Q4

REPORT INFORMATION
  Report Type: 
  Country: None (occurrence: None)
  Receive Date: 20091116
  Receipt Date: 20091103
  Transmission Date: 20100525
  Serious: Yes (Death)
  Sender: FDA-Public Use
  Company Number: 2009-04600

PATIENT
  Age: 53 Year
  Sex: Female
  Weight: 118.9 kg

DRUGS (2)
  1. VELCADE [Suspect]
     Indication: DIFFUSE LARGE B-CELL LYMPHOMA
     Dosage: 1.3 MG/M2, IV BOLUS
     Route: 040
     Dates: start: 20090824, end: 20090924
  2. VORINOSTAT (SUBEROYLANILIDE HYDROXAMIC ACID) [Suspect]
     Indication: DIFFUSE LARGE B-CELL LYMPHOMA
     Dosage: 400 MG, ORAL
     Route: 048
     Dates: start: 20090824, end: 20090925

REACTIONS (19)
  - ASPIRATION [None]
  - CARDIAC ARREST [None]
  - CORONARY ARTERY DISEASE [None]
  - DIFFUSE LARGE B-CELL LYMPHOMA [None]
  - DISEASE PROGRESSION [None]
  - EJECTION FRACTION DECREASED [None]
  - ESCHERICHIA SEPSIS [None]
  - HEART RATE INCREASED [None]
  - HYPOTENSION [None]
  - NEUTROPENIC SEPSIS [None]
  - NO THERAPEUTIC RESPONSE [None]
  - OXYGEN SATURATION DECREASED [None]
  - PULMONARY EMBOLISM [None]
  - RENAL FAILURE ACUTE [None]
  - RESPIRATORY DISTRESS [None]
  - RIGHT ATRIAL DILATATION [None]
  - SUDDEN DEATH [None]
  - TACHYPNOEA [None]
  - UROSEPSIS [None]
